FAERS Safety Report 14175348 (Version 1)
Quarter: 2017Q4

REPORT INFORMATION
  Report Type: Spontaneous
  Country: US (occurrence: US)
  Receive Date: 20171109
  Receipt Date: 20171109
  Transmission Date: 20180321
  Serious: No
  Sender: FDA-Public Use
  Company Number: US-SA-2017SA171895

PATIENT
  Age: 70 Year
  Sex: Female

DRUGS (1)
  1. XYZAL ALLERGY 24HR [Suspect]
     Active Substance: LEVOCETIRIZINE DIHYDROCHLORIDE
     Indication: HYPERSENSITIVITY
     Dosage: TOOK ONE ON SUNDAY MORNING AND SECOND TAB EARLY EVENING ON SUNDAY AND TOOK ANOTHER ON MONDAY MORNING
     Route: 048
     Dates: start: 20170910, end: 20170911

REACTIONS (3)
  - Lip swelling [Recovering/Resolving]
  - Inappropriate schedule of drug administration [Unknown]
  - Urticaria [Recovering/Resolving]
